FAERS Safety Report 13199960 (Version 1)
Quarter: 2017Q1

REPORT INFORMATION
  Report Type: Spontaneous
  Country: FR (occurrence: FR)
  Receive Date: 20170208
  Receipt Date: 20170208
  Transmission Date: 20170428
  Serious: Yes (Disabling)
  Sender: FDA-Public Use
  Company Number: FR-ALLERGAN-1704589US

PATIENT
  Sex: Female

DRUGS (1)
  1. TRIPTORELIN PAMOATE - BP [Suspect]
     Active Substance: TRIPTORELIN PAMOATE
     Indication: ENDOMETRIOSIS
     Dosage: UNK

REACTIONS (5)
  - Arthralgia [Unknown]
  - Pyrexia [Unknown]
  - Vomiting [Unknown]
  - Gait disturbance [Unknown]
  - Myalgia [Unknown]
